FAERS Safety Report 6260510-1 (Version None)
Quarter: 2009Q3

REPORT INFORMATION
  Report Type: 
  Country: None (occurrence: None)
  Receive Date: 20090706
  Receipt Date: 20090622
  Transmission Date: 20100115
  Serious: Yes (Disabling)
  Sender: FDA-Public Use
  Company Number: 2009AP002520

PATIENT
  Age: 64 Year
  Sex: Male

DRUGS (8)
  1. PAROXETINE HCL [Suspect]
     Indication: DEPRESSION
     Dosage: 30 MG;PO
     Route: 048
     Dates: start: 20050101
  2. ASPIRIN [Concomitant]
  3. ATENOLOL [Concomitant]
  4. ATORVASTATIN CALCIUM [Concomitant]
  5. METFORMIN HCL [Concomitant]
  6. NICORANDIL [Concomitant]
  7. RAMIPRIL [Interacting]
  8. ROSIGLITAZONE [Concomitant]

REACTIONS (6)
  - ABNORMAL DREAMS [None]
  - ANXIETY [None]
  - DISTURBANCE IN ATTENTION [None]
  - INSOMNIA [None]
  - IRRITABILITY [None]
  - PRODUCT QUALITY ISSUE [None]
